FAERS Safety Report 6463952-4 (Version None)
Quarter: 2009Q4

REPORT INFORMATION
  Report Type: 
  Country: None (occurrence: None)
  Receive Date: 20091201
  Receipt Date: 20091124
  Transmission Date: 20100525
  Serious: Yes (Hospitalization)
  Sender: FDA-Public Use
  Company Number: FR-ROCHE-670934

PATIENT
  Age: 69 Year
  Sex: Female

DRUGS (8)
  1. CAPECITABINE [Suspect]
     Indication: GASTRIC CANCER
     Dosage: CYCLIC
     Route: 048
     Dates: start: 20070522, end: 20070531
  2. EPIRUBICIN HCL [Suspect]
     Indication: GASTRIC CANCER
     Dosage: CYCLIC
     Route: 042
     Dates: start: 20070521, end: 20070521
  3. CISPLATIN [Suspect]
     Indication: GASTRIC CANCER
     Dosage: CYCLIC
     Route: 042
     Dates: start: 20070521, end: 20070521
  4. FLECAINIDE ACETATE [Concomitant]
     Dosage: DOSE: 150 (UNITS NOT PROVIDED)
     Route: 048
     Dates: start: 20070324
  5. ZOCOR [Concomitant]
     Dosage: DOSE: 40 (UNITS NOT PROVIDED)
     Route: 048
     Dates: start: 20070324
  6. FORLAX [Concomitant]
     Route: 048
     Dates: start: 20070325
  7. LEXOMIL [Concomitant]
     Dosage: DOSE: 1/4 TABLET
     Route: 048
     Dates: start: 20070324
  8. PRIMPERAN TAB [Concomitant]
     Route: 048
     Dates: start: 20070403

REACTIONS (1)
  - BONE MARROW FAILURE [None]
